FAERS Safety Report 24747466 (Version 2)
Quarter: 2025Q1

REPORT INFORMATION
  Report Type: Spontaneous
  Country: US (occurrence: US)
  Receive Date: 20241218
  Receipt Date: 20250326
  Transmission Date: 20250408
  Serious: Yes (Other)
  Sender: COOPERSURGICAL
  Company Number: US-COOPERSURGICAL, INC.-2024CPS003886

PATIENT
  Age: 30 Year
  Sex: Female
  Weight: 107.94 kg

DRUGS (1)
  1. PARAGARD T 380A [Suspect]
     Active Substance: COPPER
     Indication: Contraception
     Route: 015
     Dates: start: 20180111, end: 20190918

REACTIONS (21)
  - Vulvovaginal injury [Recovered/Resolved]
  - Uterine disorder [Recovered/Resolved]
  - Ovarian disorder [Recovered/Resolved]
  - Device breakage [Recovered/Resolved]
  - Foreign body in reproductive tract [Recovered/Resolved]
  - Complication of device removal [Recovered/Resolved]
  - Embedded device [Recovered/Resolved]
  - Anxiety [Not Recovered/Not Resolved]
  - Depression [Not Recovered/Not Resolved]
  - Affect lability [Unknown]
  - Attention deficit hyperactivity disorder [Unknown]
  - Migraine [Unknown]
  - Vulvovaginal pain [Unknown]
  - Uterine pain [Unknown]
  - Adnexa uteri pain [Unknown]
  - Sensation of foreign body [Recovered/Resolved]
  - Fall [Unknown]
  - Procedural pain [Recovered/Resolved]
  - Device dislocation [Recovered/Resolved]
  - Pain [Recovered/Resolved]
  - Unevaluable event [Recovered/Resolved]

NARRATIVE: CASE EVENT DATE: 20190820
